FAERS Safety Report 9962827 (Version 2)
Quarter: 2014Q1

REPORT INFORMATION
  Report Type: Report from Study
  Country: US (occurrence: US)
  Receive Date: 20140305
  Receipt Date: 20140305
  Transmission Date: 20141002
  Serious: No
  Sender: FDA-Public Use
  Company Number: US-ABBVIE-13P-163-1105754-00

PATIENT
  Age: 46 Year
  Sex: Female

DRUGS (20)
  1. HUMIRA [Suspect]
     Indication: RHEUMATOID ARTHRITIS
     Dates: start: 20130216
  2. HUMIRA [Suspect]
  3. OPANA [Concomitant]
     Indication: RHEUMATOID ARTHRITIS
     Route: 048
  4. OPANA [Concomitant]
     Indication: MUSCULOSKELETAL DISCOMFORT
  5. OXYMORPHONE [Concomitant]
     Indication: MUSCULOSKELETAL DISCOMFORT
     Dosage: AS NEEDED
  6. METHOTREXATE [Concomitant]
     Indication: RHEUMATOID ARTHRITIS
     Route: 048
  7. ESCITALOPRAM [Concomitant]
     Indication: BIPOLAR DISORDER
     Route: 048
  8. LYRICA [Concomitant]
     Indication: FIBROMYALGIA
     Route: 048
  9. LEVOTHYROXINE [Concomitant]
     Indication: THYROID DISORDER
  10. QUETIAPINE [Concomitant]
     Indication: BIPOLAR DISORDER
     Route: 048
  11. QUETIAPINE [Concomitant]
     Indication: DEPRESSION
  12. FOLIC ACID [Concomitant]
     Indication: RHEUMATOID ARTHRITIS
     Route: 048
  13. LORAZEPAM [Concomitant]
     Indication: ANXIETY
     Dosage: AS NEEDED
     Route: 048
  14. ADVAIR [Concomitant]
     Indication: ASTHMA
     Dosage: 250/20  IN AM AND IN PM
  15. ALBUTEROL [Concomitant]
     Indication: ASTHMA
     Dosage: 2 PUFFS AS NEEDED
  16. PROVENTIL [Concomitant]
     Indication: ASTHMA
     Dosage: DAILY
  17. LATRATADINE [Concomitant]
     Indication: HYPERSENSITIVITY
     Dosage: IN AM AND IN PM
  18. PATANOL [Concomitant]
     Indication: EYE DISORDER
  19. TIZANIDINE [Concomitant]
     Indication: MUSCULOSKELETAL DISCOMFORT
     Dates: start: 201304
  20. FLEXERIL [Concomitant]
     Indication: MUSCULOSKELETAL DISCOMFORT
     Dates: end: 201304

REACTIONS (1)
  - Drug ineffective [Not Recovered/Not Resolved]
